FAERS Safety Report 16164086 (Version 3)
Quarter: 2019Q2

REPORT INFORMATION
  Report Type: Report from Study
  Country: JP (occurrence: JP)
  Receive Date: 20190405
  Receipt Date: 20190617
  Transmission Date: 20190711
  Serious: Yes (Disabling)
  Sender: FDA-Public Use
  Company Number: JP-ACTELION-A-CH2019-188334

PATIENT
  Age: 40 Year
  Sex: Female

DRUGS (8)
  1. ADCIRCA [Concomitant]
     Active Substance: TADALAFIL
  2. FUROSEMIDE. [Concomitant]
     Active Substance: FUROSEMIDE
  3. ENDOXAN [Concomitant]
     Active Substance: CYCLOPHOSPHAMIDE
  4. OPSUMIT [Suspect]
     Active Substance: MACITENTAN
     Indication: PULMONARY ARTERIAL HYPERTENSION
     Dosage: 10 MG, QD
     Route: 048
     Dates: start: 20160805
  5. PREDNISOLONE. [Concomitant]
     Active Substance: PREDNISOLONE
  6. SPIRONOLACTONE. [Concomitant]
     Active Substance: SPIRONOLACTONE
  7. IMURAN [Concomitant]
     Active Substance: AZATHIOPRINE
  8. UPTRAVI [Concomitant]
     Active Substance: SELEXIPAG
     Route: 048

REACTIONS (1)
  - Hypothyroidism [Not Recovered/Not Resolved]

NARRATIVE: CASE EVENT DATE: 20181207
